FAERS Safety Report 8996705 (Version 1)
Quarter: 2013Q1

REPORT INFORMATION
  Report Type: Spontaneous
  Country: US (occurrence: US)
  Receive Date: 20130104
  Receipt Date: 20130104
  Transmission Date: 20140127
  Serious: Yes (Other)
  Sender: FDA-Public Use
  Company Number: PHEH2012US025683

PATIENT
  Sex: Female

DRUGS (1)
  1. GLEEVEC [Suspect]
     Indication: ABDOMINAL NEOPLASM
     Dosage: 300 MG, DAILY
     Route: 048
     Dates: end: 20121231

REACTIONS (3)
  - Liver disorder [Unknown]
  - Hepatic enzyme abnormal [Unknown]
  - Rash generalised [Unknown]
